FAERS Safety Report 12373204 (Version 1)
Quarter: 2016Q2

REPORT INFORMATION
  Report Type: Spontaneous
  Country: AU (occurrence: AU)
  Receive Date: 20160516
  Receipt Date: 20160516
  Transmission Date: 20160815
  Serious: Yes (Other)
  Sender: FDA-Public Use
  Company Number: AU-MYLANLABS-2016M1019920

PATIENT

DRUGS (1)
  1. SPIRACTIN 100 [Suspect]
     Active Substance: SPIRONOLACTONE
     Indication: HIRSUTISM
     Dosage: UNK
     Dates: end: 2016

REACTIONS (3)
  - Activities of daily living impaired [Unknown]
  - Pain in extremity [Unknown]
  - Abnormal weight gain [Unknown]
